FAERS Safety Report 7534165-X (Version None)
Quarter: 2011Q2

REPORT INFORMATION
  Report Type: 
  Country: None (occurrence: None)
  Receive Date: 20110608
  Receipt Date: 20061124
  Transmission Date: 20111010
  Serious: Yes (Death, Hospitalization)
  Sender: FDA-Public Use
  Company Number: PHMT2006CA01895

PATIENT
  Sex: Female

DRUGS (3)
  1. NOVO-HYDROXYZIN [Concomitant]
  2. ADALAT CC [Concomitant]
  3. SANDOSTATIN LAR [Suspect]
     Indication: HEPATIC NEOPLASM MALIGNANT
     Dosage: 20 MG, QMO
     Dates: start: 20031008, end: 20061101

REACTIONS (4)
  - PORTAL VEIN OCCLUSION [None]
  - HEART RATE INCREASED [None]
  - DEATH [None]
  - PULMONARY HYPERTENSION [None]
